FAERS Safety Report 15018260 (Version 1)
Quarter: 2018Q2

REPORT INFORMATION
  Report Type: Spontaneous
  Country: FR (occurrence: FR)
  Receive Date: 20180615
  Receipt Date: 20180615
  Transmission Date: 20180711
  Serious: Yes (Hospitalization)
  Sender: FDA-Public Use
  Company Number: PHHY2018FR022279

PATIENT
  Age: 4 Month
  Sex: Female
  Weight: 6.7 kg

DRUGS (1)
  1. CEFTRIAXONE. [Suspect]
     Active Substance: CEFTRIAXONE
     Indication: PYELONEPHRITIS ACUTE
     Dosage: 650 MG ? J1, PUIS 350MG
     Route: 030

REACTIONS (2)
  - Prothrombin level decreased [Recovered/Resolved]
  - Vitamin K decreased [Recovered/Resolved]

NARRATIVE: CASE EVENT DATE: 20180302
